FAERS Safety Report 6428326-0 (Version None)
Quarter: 2009Q4

REPORT INFORMATION
  Report Type: 
  Country: None (occurrence: None)
  Receive Date: 20091102
  Receipt Date: 20091013
  Transmission Date: 20100525
  Serious: Yes (Other)
  Sender: FDA-Public Use
  Company Number: 2009-4467

PATIENT
  Age: 47 Year
  Sex: Male

DRUGS (6)
  1. APOMORPHINE (APO-GO) (APOMORPHINE HYDROCHLORIDE) (APOMORPHINE [Suspect]
     Indication: PARKINSON'S DISEASE
     Dosage: SUBCUTANEOUS
     Route: 058
     Dates: start: 20050115
  2. CLOZARIL [Suspect]
     Indication: PSYCHOTIC DISORDER
     Dosage: 50 MG, ORAL
     Route: 048
     Dates: start: 20071219, end: 20080105
  3. LANSOPRAZOLE [Concomitant]
  4. QUETIAPINE FUMARATE [Concomitant]
  5. STALEVO (STALEVO) [Concomitant]
  6. ASPIRIN [Concomitant]

REACTIONS (3)
  - CARDIAC MURMUR [None]
  - HYPOTENSION [None]
  - TACHYCARDIA [None]
